FAERS Safety Report 25230282 (Version 4)
Quarter: 2025Q3

REPORT INFORMATION
  Report Type: Spontaneous
  Country: EU (occurrence: EU)
  Receive Date: 20250423
  Receipt Date: 20250825
  Transmission Date: 20251020
  Serious: Yes (Hospitalization, Other)
  Sender: MYLAN
  Company Number: EU-JNJFOC-20250367145

PATIENT
  Age: 65 Year
  Sex: Female
  Weight: 83 kg

DRUGS (28)
  1. DEXAMETHASONE [Suspect]
     Active Substance: DEXAMETHASONE
     Indication: Plasma cell myeloma
     Route: 065
     Dates: start: 20191001, end: 20200610
  2. DEXAMETHASONE [Suspect]
     Active Substance: DEXAMETHASONE
     Dates: start: 20191001, end: 20200610
  3. DEXAMETHASONE [Suspect]
     Active Substance: DEXAMETHASONE
     Dates: start: 20191001, end: 20200610
  4. DEXAMETHASONE [Suspect]
     Active Substance: DEXAMETHASONE
     Route: 065
     Dates: start: 20191001, end: 20200610
  5. DEXAMETHASONE [Suspect]
     Active Substance: DEXAMETHASONE
     Route: 065
  6. DEXAMETHASONE [Suspect]
     Active Substance: DEXAMETHASONE
  7. DEXAMETHASONE [Suspect]
     Active Substance: DEXAMETHASONE
  8. DEXAMETHASONE [Suspect]
     Active Substance: DEXAMETHASONE
     Route: 065
  9. BORTEZOMIB [Suspect]
     Active Substance: BORTEZOMIB
     Indication: Plasma cell myeloma
     Route: 058
     Dates: start: 20191001, end: 20200612
  10. BORTEZOMIB [Suspect]
     Active Substance: BORTEZOMIB
     Dates: start: 20191001, end: 20200612
  11. BORTEZOMIB [Suspect]
     Active Substance: BORTEZOMIB
     Dates: start: 20191001, end: 20200612
  12. BORTEZOMIB [Suspect]
     Active Substance: BORTEZOMIB
     Route: 058
     Dates: start: 20191001, end: 20200612
  13. BORTEZOMIB [Suspect]
     Active Substance: BORTEZOMIB
     Route: 058
  14. BORTEZOMIB [Suspect]
     Active Substance: BORTEZOMIB
  15. BORTEZOMIB [Suspect]
     Active Substance: BORTEZOMIB
  16. BORTEZOMIB [Suspect]
     Active Substance: BORTEZOMIB
     Route: 058
  17. LENALIDOMIDE [Suspect]
     Active Substance: LENALIDOMIDE
     Indication: Plasma cell myeloma
     Dates: start: 20191001, end: 20250304
  18. LENALIDOMIDE [Suspect]
     Active Substance: LENALIDOMIDE
     Route: 048
     Dates: start: 20191001, end: 20250304
  19. LENALIDOMIDE [Suspect]
     Active Substance: LENALIDOMIDE
     Route: 048
     Dates: start: 20191001, end: 20250304
  20. LENALIDOMIDE [Suspect]
     Active Substance: LENALIDOMIDE
     Dates: start: 20191001, end: 20250304
  21. TOLODODEKIN ALFA [Suspect]
     Active Substance: TOLODODEKIN ALFA
     Indication: Plasma cell myeloma
     Route: 058
     Dates: start: 20191001, end: 20230112
  22. TOLODODEKIN ALFA [Suspect]
     Active Substance: TOLODODEKIN ALFA
     Dates: start: 20191001, end: 20230112
  23. TOLODODEKIN ALFA [Suspect]
     Active Substance: TOLODODEKIN ALFA
     Dates: start: 20191001, end: 20230112
  24. TOLODODEKIN ALFA [Suspect]
     Active Substance: TOLODODEKIN ALFA
     Route: 058
     Dates: start: 20191001, end: 20230112
  25. TOLODODEKIN ALFA [Suspect]
     Active Substance: TOLODODEKIN ALFA
     Route: 058
  26. TOLODODEKIN ALFA [Suspect]
     Active Substance: TOLODODEKIN ALFA
  27. TOLODODEKIN ALFA [Suspect]
     Active Substance: TOLODODEKIN ALFA
  28. TOLODODEKIN ALFA [Suspect]
     Active Substance: TOLODODEKIN ALFA
     Route: 058

REACTIONS (4)
  - Breast cancer [Not Recovered/Not Resolved]
  - Pneumococcal sepsis [Recovered/Resolved]
  - Intervertebral discitis [Recovered/Resolved]
  - Lung adenocarcinoma [Not Recovered/Not Resolved]

NARRATIVE: CASE EVENT DATE: 20250305
